FAERS Safety Report 7630332-5 (Version None)
Quarter: 2011Q3

REPORT INFORMATION
  Report Type: 
  Country: None (occurrence: None)
  Receive Date: 20110722
  Receipt Date: 20110714
  Transmission Date: 20111222
  Serious: Yes (Hospitalization, Other)
  Sender: FDA-Public Use
  Company Number: US-BAYER-2011-004796

PATIENT
  Age: 36 Year
  Sex: Female
  Weight: 90.703 kg

DRUGS (10)
  1. LISINOPRIL [Concomitant]
     Dosage: 40 MG, UNK
     Route: 048
     Dates: start: 20080118, end: 20090721
  2. APAP W/ CODEINE [Concomitant]
     Dosage: UNK
     Route: 048
     Dates: start: 20090422
  3. CYCLOBENZAPRINE [Concomitant]
     Dosage: 10 MG, UNK
     Route: 048
     Dates: start: 20090422
  4. HYDROCHLOROTHIAZIDE [Concomitant]
     Dosage: 25 MG, UNK
     Route: 048
     Dates: start: 20080110, end: 20090721
  5. YASMIN [Suspect]
     Indication: CONTRACEPTION
     Dosage: UNK
     Dates: start: 20080119, end: 20080612
  6. PROMETHAZINE [Concomitant]
     Dosage: 25 MG, UNK
     Route: 048
     Dates: start: 20090422
  7. PROPOXYPHENE NAPSYLATE W/ ACETAMINOPHEN [Concomitant]
     Dosage: UNK
     Route: 048
     Dates: start: 20090504
  8. PANTOPRAZOLE [Concomitant]
     Dosage: 40 MG, UNK
     Route: 048
     Dates: start: 20090414, end: 20090721
  9. CLINDAMYCIN [Concomitant]
     Dosage: 150 MG, UNK
     Route: 048
     Dates: start: 20090504
  10. DROSPIRENONE AND ETHINYL ESTRADIOL [Suspect]
     Indication: CONTRACEPTION
     Dosage: UNK
     Route: 048
     Dates: start: 20080711, end: 20090721

REACTIONS (4)
  - INJURY [None]
  - EMOTIONAL DISTRESS [None]
  - MYOCARDIAL INFARCTION [None]
  - PAIN [None]
